FAERS Safety Report 8021007-1 (Version None)
Quarter: 2011Q4

REPORT INFORMATION
  Report Type: 
  Country: None (occurrence: None)
  Receive Date: 20111229
  Receipt Date: 20111214
  Transmission Date: 20120403
  Serious: Yes (Hospitalization)
  Sender: FDA-Public Use
  Company Number: 2008TH0356

PATIENT
  Age: 15 Month
  Sex: Male

DRUGS (1)
  1. ORFADIN [Suspect]
     Indication: TYROSINAEMIA
     Dosage: 5 MG
     Route: 048
     Dates: start: 20030101, end: 20030101

REACTIONS (1)
  - LIVER TRANSPLANT [None]
